FAERS Safety Report 9440686 (Version 2)
Quarter: 2013Q3

REPORT INFORMATION
  Report Type: Spontaneous
  Country: US (occurrence: US)
  Receive Date: 20130805
  Receipt Date: 20130917
  Transmission Date: 20140515
  Serious: Yes (Hospitalization)
  Sender: FDA-Public Use
  Company Number: US-PFIZER INC-2013225757

PATIENT
  Age: 64 Year
  Sex: Female

DRUGS (1)
  1. METHYLPREDNISOLONE [Suspect]
     Dosage: 4MG TABLET; 6 TABLETS ON 1ST DAY, 5 TABS ON 2ND DAY, 4 TABS ON 3RD DAY, 3 TABS ON 4TH DAY)
     Route: 048
     Dates: start: 2013, end: 2013

REACTIONS (5)
  - Pneumonia aspiration [Recovered/Resolved]
  - Glossodynia [Recovered/Resolved]
  - Throat irritation [Recovered/Resolved]
  - Dyspepsia [Recovered/Resolved]
  - Product solubility abnormal [Recovered/Resolved]
